FAERS Safety Report 8293411-8 (Version None)
Quarter: 2012Q2

REPORT INFORMATION
  Report Type: 
  Country: None (occurrence: None)
  Receive Date: 20120417
  Receipt Date: 20110825
  Transmission Date: 20120825
  Serious: No
  Sender: FDA-Public Use
  Company Number: US-ASTRAZENECA-2011SE51521

PATIENT

DRUGS (1)
  1. NEXIUM [Suspect]
     Route: 048

REACTIONS (6)
  - GENERAL PHYSICAL CONDITION ABNORMAL [None]
  - DIARRHOEA [None]
  - DEPRESSION [None]
  - ELECTROLYTE IMBALANCE [None]
  - BACK PAIN [None]
  - DRUG DOSE OMISSION [None]
